FAERS Safety Report 4348791-2 (Version None)
Quarter: 2004Q1

REPORT INFORMATION
  Report Type: 
  Country: None (occurrence: None)
  Receive Date: 20040329
  Receipt Date: 20031208
  Transmission Date: 20041129
  Serious: No
  Sender: FDA-Public Use
  Company Number: USA031254276

PATIENT
  Sex: Female
  Weight: 109 kg

DRUGS (2)
  1. STRATTERA [Suspect]
     Dosage: 80 MG/DAY
     Dates: start: 20031201
  2. CITRACAL (CALCIUM CITRATE) [Concomitant]

REACTIONS (4)
  - CONSTIPATION [None]
  - FATIGUE [None]
  - INSOMNIA [None]
  - RECTAL HAEMORRHAGE [None]
